FAERS Safety Report 5630340-X (Version None)
Quarter: 2008Q1

REPORT INFORMATION
  Report Type: 
  Country: None (occurrence: None)
  Receive Date: 20080213
  Receipt Date: 20080207
  Transmission Date: 20080703
  Serious: Yes (Other)
  Sender: FDA-Public Use
  Company Number: 2008SP002808

PATIENT
  Age: 51 Year
  Sex: Female

DRUGS (2)
  1. PEG-INTRON [Suspect]
     Indication: HEPATITIS C VIRUS
     Dosage: SC
     Route: 058
  2. ZOLOFT [Concomitant]

REACTIONS (5)
  - ARTHRALGIA [None]
  - CRYOGLOBULINAEMIA [None]
  - HYPOAESTHESIA [None]
  - ILL-DEFINED DISORDER [None]
  - WEIGHT DECREASED [None]
